FAERS Safety Report 18130337 (Version 1)
Quarter: 2020Q3

REPORT INFORMATION
  Report Type: Other
  Country: TN (occurrence: TN)
  Receive Date: 20200810
  Receipt Date: 20200810
  Transmission Date: 20201103
  Serious: Yes (Death, Other)
  Sender: FDA-Public Use
  Company Number: TN-HEALTHCARE PHARMACEUTICALS LTD.-2088409

PATIENT
  Age: 27 Year
  Sex: Female

DRUGS (1)
  1. DOXORUBICIN HYDROCHLORIDE. [Suspect]
     Active Substance: DOXORUBICIN HYDROCHLORIDE
     Indication: CLEAR CELL SARCOMA OF SOFT TISSUE
     Route: 065

REACTIONS (3)
  - Left ventricular dysfunction [Fatal]
  - Cardiotoxicity [Fatal]
  - Condition aggravated [Fatal]
